FAERS Safety Report 7360467-6 (Version None)
Quarter: 2011Q1

REPORT INFORMATION
  Report Type: 
  Country: None (occurrence: None)
  Receive Date: 20110318
  Receipt Date: 20110308
  Transmission Date: 20110831
  Serious: Yes (Hospitalization, Other)
  Sender: FDA-Public Use
  Company Number: US-BAYER-2011-021337

PATIENT
  Sex: Female

DRUGS (1)
  1. MIRENA [Suspect]
     Indication: CONTRACEPTION
     Dosage: UNK, CONT
     Route: 015
     Dates: start: 20101218

REACTIONS (7)
  - PREGNANCY WITH CONTRACEPTIVE DEVICE [None]
  - DECOMPRESSION SICKNESS [None]
  - BLOOD HUMAN CHORIONIC GONADOTROPIN DECREASED [None]
  - ANTEPARTUM HAEMORRHAGE [None]
  - ABORTION [None]
  - MUSCLE SPASMS [None]
  - HAEMOGLOBIN DECREASED [None]
